FAERS Safety Report 15151560 (Version 9)
Quarter: 2019Q3

REPORT INFORMATION
  Report Type: Report from Study
  Country: US (occurrence: US)
  Receive Date: 20180716
  Receipt Date: 20190820
  Transmission Date: 20191004
  Serious: Yes (Hospitalization, Disabling, Other)
  Sender: FDA-Public Use
  Company Number: US-SAKK-2018SA182012AA

PATIENT
  Age: 53 Year
  Sex: Female

DRUGS (4)
  1. PREDNISONE. [Concomitant]
     Active Substance: PREDNISONE
     Dosage: 30 MG
  2. ACICLOVIR [Concomitant]
     Active Substance: ACYCLOVIR
  3. ALEMTUZUMAB [Suspect]
     Active Substance: ALEMTUZUMAB
     Indication: MULTIPLE SCLEROSIS RELAPSE
     Dosage: 12 MG, QD
     Route: 041
     Dates: start: 20170731, end: 20170804
  4. ALEMTUZUMAB [Suspect]
     Active Substance: ALEMTUZUMAB
     Dosage: 12 MG, QD
     Route: 041
     Dates: start: 20180806, end: 20180808

REACTIONS (16)
  - Red blood cell count decreased [Recovered/Resolved]
  - Haemoglobin abnormal [Unknown]
  - White blood cell count abnormal [Unknown]
  - Lymphocyte count abnormal [Not Recovered/Not Resolved]
  - Blindness unilateral [Unknown]
  - Haemolytic anaemia [Recovered/Resolved]
  - Pyrexia [Recovered/Resolved]
  - Platelet count abnormal [Unknown]
  - Tinea cruris [Unknown]
  - Blood urine [Recovered/Resolved]
  - Full blood count decreased [Recovered/Resolved]
  - Pseudomonas infection [Recovered/Resolved]
  - Platelet count decreased [Recovered/Resolved]
  - Wheelchair user [Unknown]
  - White blood cell count decreased [Recovered/Resolved]
  - Bacterial vaginosis [Recovered/Resolved]

NARRATIVE: CASE EVENT DATE: 201709
